FAERS Safety Report 15500478 (Version 2)
Quarter: 2019Q1

REPORT INFORMATION
  Report Type: Report from Study
  Country: DE (occurrence: DE)
  Receive Date: 20181015
  Receipt Date: 20190102
  Transmission Date: 20190417
  Serious: Yes (Hospitalization)
  Sender: FDA-Public Use
  Company Number: DE-PFIZER INC-2018312343

PATIENT
  Age: 71 Year
  Sex: Female
  Weight: 60 kg

DRUGS (55)
  1. IRINOTECAN HCL [Suspect]
     Active Substance: IRINOTECAN HYDROCHLORIDE
     Indication: BREAST CANCER
     Dosage: 280 MG, CYCLIC ( EVERY 2 WEEKS)
     Route: 042
     Dates: start: 20130430
  2. IRINOTECAN HCL [Suspect]
     Active Substance: IRINOTECAN HYDROCHLORIDE
     Dosage: 240 MG, UNK
     Route: 042
     Dates: start: 20130528
  3. IRINOTECAN HCL [Suspect]
     Active Substance: IRINOTECAN HYDROCHLORIDE
     Dosage: 240 MG, UNK
     Route: 042
     Dates: start: 20130820
  4. 5-FLU [Suspect]
     Active Substance: FLUOROURACIL
     Indication: COLORECTAL CANCER
     Dosage: 3850 MG, UNK
     Route: 040
     Dates: start: 20130430, end: 20130502
  5. 5-FLU [Suspect]
     Active Substance: FLUOROURACIL
     Dosage: 3050 MG, UNK
     Route: 040
     Dates: start: 20130903, end: 20130905
  6. 5-FLU [Suspect]
     Active Substance: FLUOROURACIL
     Dosage: 500 MG, UNK
     Route: 041
     Dates: start: 20130805
  7. AVASTIN [Suspect]
     Active Substance: BEVACIZUMAB
     Dosage: DAILY DOSE: 300 MG MILLGRAM(S) EVERY 2 WEEKS
     Route: 042
     Dates: start: 20130528, end: 20130528
  8. CALCIUM FOLINATE [Suspect]
     Active Substance: LEUCOVORIN CALCIUM
     Dosage: 510 MG, UNK
     Route: 042
     Dates: start: 20130716
  9. IRINOTECAN HCL [Suspect]
     Active Substance: IRINOTECAN HYDROCHLORIDE
     Dosage: 240 MG, UNK
     Route: 042
     Dates: start: 20131203
  10. 5-FLU [Suspect]
     Active Substance: FLUOROURACIL
     Dosage: 3100 MG, UNK
     Route: 040
     Dates: start: 20130528, end: 20130530
  11. 5-FLU [Suspect]
     Active Substance: FLUOROURACIL
     Dosage: 3050 MG, UNK
     Route: 040
     Dates: start: 20130716, end: 20130718
  12. 5-FLU [Suspect]
     Active Substance: FLUOROURACIL
     Indication: BREAST CANCER
     Dosage: 4500 MG, CYCLIC (EVERY 2 WEEKS)
     Route: 041
     Dates: start: 20130430
  13. 5-FLU [Suspect]
     Active Substance: FLUOROURACIL
     Dosage: 500 MG, UNK
     Route: 041
     Dates: start: 20130528
  14. 5-FLU [Suspect]
     Active Substance: FLUOROURACIL
     Dosage: 500 MG, UNK
     Route: 041
     Dates: start: 20130702
  15. 5-FLU [Suspect]
     Active Substance: FLUOROURACIL
     Dosage: 500 MG, UNK
     Route: 041
     Dates: start: 20130820
  16. 5-FLU [Suspect]
     Active Substance: FLUOROURACIL
     Dosage: 500 MG, UNK
     Route: 041
     Dates: start: 20140114
  17. PANTOPRAZOLE [Concomitant]
     Active Substance: PANTOPRAZOLE
     Indication: ULCER
     Dosage: DAILY DOSE: 80 MG MILLGRAM(S) EVERY DAYS
     Route: 048
  18. CALCIUM FOLINATE [Suspect]
     Active Substance: LEUCOVORIN CALCIUM
     Dosage: 510 MG, UNK
     Route: 042
     Dates: start: 20130805
  19. CALCIUM FOLINATE [Suspect]
     Active Substance: LEUCOVORIN CALCIUM
     Dosage: 510 MG, UNK
     Route: 042
     Dates: start: 20130903
  20. IRINOTECAN HCL [Suspect]
     Active Substance: IRINOTECAN HYDROCHLORIDE
     Dosage: 240 MG, UNK
     Route: 042
     Dates: start: 20130619
  21. AVASTIN [Suspect]
     Active Substance: BEVACIZUMAB
     Indication: BREAST CANCER
     Dosage: DAILY DOSE: 300 MG MILLGRAM(S) EVERY 2 WEEKS
     Route: 042
     Dates: start: 20130430, end: 20130430
  22. MCP DROPS [Concomitant]
     Indication: VOMITING
     Dosage: DAILY DOSE: 90 GTT DROP(S) EVERY DAYS
     Route: 048
  23. CALCIUM FOLINATE [Suspect]
     Active Substance: LEUCOVORIN CALCIUM
     Dosage: 510 MG, UNK
     Route: 042
     Dates: start: 20131203
  24. IRINOTECAN HCL [Suspect]
     Active Substance: IRINOTECAN HYDROCHLORIDE
     Dosage: 240 MG, UNK
     Route: 042
     Dates: start: 20130702
  25. 5-FLU [Suspect]
     Active Substance: FLUOROURACIL
     Indication: COLORECTAL CANCER
     Dosage: 650 MG, UNK
     Route: 041
     Dates: start: 20130514
  26. AVASTIN [Suspect]
     Active Substance: BEVACIZUMAB
     Dosage: DAILY DOSE: 300 MG MILLGRAM(S) EVERY 2 WEEKS
     Route: 042
     Dates: start: 20140114, end: 20140114
  27. CALCIUM FOLINATE [Suspect]
     Active Substance: LEUCOVORIN CALCIUM
     Indication: COLORECTAL CANCER
     Dosage: 640 MG, UNK
     Route: 042
     Dates: start: 20130514
  28. CALCIUM FOLINATE [Suspect]
     Active Substance: LEUCOVORIN CALCIUM
     Dosage: 510 MG, UNK
     Route: 042
     Dates: start: 20130619
  29. CALCIUM FOLINATE [Suspect]
     Active Substance: LEUCOVORIN CALCIUM
     Dosage: 510 MG, UNK
     Route: 042
     Dates: start: 20140114
  30. 5-FLU [Suspect]
     Active Substance: FLUOROURACIL
     Dosage: 3850 MG, UNK
     Route: 040
     Dates: start: 20130514, end: 20130516
  31. 5-FLU [Suspect]
     Active Substance: FLUOROURACIL
     Dosage: 3050 MG, UNK
     Route: 040
     Dates: start: 20130702, end: 20130704
  32. 5-FLU [Suspect]
     Active Substance: FLUOROURACIL
     Dosage: 3050 MG, UNK
     Route: 040
     Dates: start: 20131015, end: 20131017
  33. 5-FLU [Suspect]
     Active Substance: FLUOROURACIL
     Dosage: 3050 MG, UNK
     Route: 040
     Dates: start: 20140619, end: 20140621
  34. 5-FLU [Suspect]
     Active Substance: FLUOROURACIL
     Dosage: 500 MG, UNK
     Route: 041
     Dates: start: 20130619
  35. 5-FLU [Suspect]
     Active Substance: FLUOROURACIL
     Dosage: 500 MG, UNK
     Route: 041
     Dates: start: 20130716
  36. 5-FLU [Suspect]
     Active Substance: FLUOROURACIL
     Dosage: 500 MG, UNK
     Route: 041
     Dates: start: 20131015
  37. 5-FLU [Suspect]
     Active Substance: FLUOROURACIL
     Dosage: 500 MG, UNK
     Route: 041
     Dates: start: 20131203
  38. CALCIUM FOLINATE [Suspect]
     Active Substance: LEUCOVORIN CALCIUM
     Indication: BREAST CANCER
     Dosage: 640 MG, CYCLIC (EVERY 2 WEEKS)
     Route: 042
     Dates: start: 20130430
  39. CALCIUM FOLINATE [Suspect]
     Active Substance: LEUCOVORIN CALCIUM
     Dosage: 520 MG, UNK
     Route: 042
     Dates: start: 20130528
  40. CALCIUM FOLINATE [Suspect]
     Active Substance: LEUCOVORIN CALCIUM
     Dosage: 510 MG, UNK
     Route: 042
     Dates: start: 20130702
  41. CALCIUM FOLINATE [Suspect]
     Active Substance: LEUCOVORIN CALCIUM
     Dosage: 510 MG, UNK
     Route: 042
     Dates: start: 20130820
  42. IRINOTECAN HCL [Suspect]
     Active Substance: IRINOTECAN HYDROCHLORIDE
     Dosage: 240 MG, UNK
     Route: 042
     Dates: start: 20130716
  43. IRINOTECAN HCL [Suspect]
     Active Substance: IRINOTECAN HYDROCHLORIDE
     Dosage: 240 MG, UNK
     Route: 042
     Dates: start: 20130805
  44. IRINOTECAN HCL [Suspect]
     Active Substance: IRINOTECAN HYDROCHLORIDE
     Dosage: 240 MG, UNK
     Route: 042
     Dates: start: 20130903
  45. 5-FLU [Suspect]
     Active Substance: FLUOROURACIL
     Dosage: 3050 MG, UNK
     Route: 040
     Dates: start: 20131203, end: 20131205
  46. 5-FLU [Suspect]
     Active Substance: FLUOROURACIL
     Dosage: 3050 MG, UNK
     Route: 040
     Dates: start: 20140114, end: 20140116
  47. 5-FLU [Suspect]
     Active Substance: FLUOROURACIL
     Dosage: 3050 MG, UNK
     Route: 040
     Dates: start: 20140805, end: 20140807
  48. 5-FLU [Suspect]
     Active Substance: FLUOROURACIL
     Dosage: 500 MG, UNK
     Route: 041
     Dates: start: 20130903
  49. AVASTIN [Suspect]
     Active Substance: BEVACIZUMAB
     Dosage: DAILY DOSE: 300 MG MILLGRAM(S) EVERY 2 WEEKS
     Route: 042
     Dates: start: 20131203, end: 20131203
  50. CALCIUM FOLINATE [Suspect]
     Active Substance: LEUCOVORIN CALCIUM
     Dosage: 510 MG, UNK
     Route: 042
     Dates: start: 20131015
  51. IRINOTECAN HCL [Suspect]
     Active Substance: IRINOTECAN HYDROCHLORIDE
     Indication: COLORECTAL CANCER
     Dosage: 280 MG, UNK
     Route: 042
     Dates: start: 20130514
  52. IRINOTECAN HCL [Suspect]
     Active Substance: IRINOTECAN HYDROCHLORIDE
     Dosage: 240 MG, UNK
     Route: 042
     Dates: start: 20131015
  53. IRINOTECAN HCL [Suspect]
     Active Substance: IRINOTECAN HYDROCHLORIDE
     Dosage: 240 MG, UNK
     Route: 042
     Dates: start: 20140114
  54. 5-FLU [Suspect]
     Active Substance: FLUOROURACIL
     Dosage: 3050 MG, UNK
     Route: 040
     Dates: start: 20130820, end: 20130822
  55. METOHEXAL [Concomitant]
     Active Substance: METOPROLOL
     Dosage: DAILY DOSE: 95 MG MILLGRAM(S) EVERY DAYS
     Route: 048

REACTIONS (7)
  - Stoma site haemorrhage [Recovered/Resolved]
  - Abdominal pain [Recovered/Resolved]
  - Cholelithiasis [Recovered/Resolved]
  - Abdominal pain upper [Recovered/Resolved]
  - Cholangitis [Recovered/Resolved]
  - Abdominal pain [Not Recovered/Not Resolved]
  - Anaemia [Recovered/Resolved]

NARRATIVE: CASE EVENT DATE: 20130430
